FAERS Safety Report 7735084-6 (Version None)
Quarter: 2011Q3

REPORT INFORMATION
  Report Type: 
  Country: None (occurrence: None)
  Receive Date: 20110907
  Receipt Date: 20110825
  Transmission Date: 20111222
  Serious: Yes (Death)
  Sender: FDA-Public Use
  Company Number: KR-CELGENEUS-286-C5013-11011889

PATIENT
  Sex: Male
  Weight: 68.3 kg

DRUGS (14)
  1. LENALIDOMIDE [Suspect]
     Indication: MULTIPLE MYELOMA
     Dosage: 25 MILLIGRAM
     Route: 048
     Dates: start: 20100520
  2. IRCODON [Concomitant]
     Dosage: 15 MILLIGRAM
     Route: 048
     Dates: start: 20100812, end: 20110118
  3. DEXAMETHASONE [Suspect]
     Indication: MULTIPLE MYELOMA
     Dosage: 20 MILLIGRAM
     Route: 065
     Dates: start: 20100520
  4. LASIX [Concomitant]
     Indication: HYPERTENSION
     Dosage: 20 MILLIGRAM
     Route: 048
     Dates: start: 20100402, end: 20110118
  5. ASPIRIN [Concomitant]
     Dosage: 100 MILLIGRAM
     Route: 048
     Dates: start: 20100520, end: 20110118
  6. ENAFON [Concomitant]
     Dosage: 10 MILLIGRAM
     Route: 048
     Dates: start: 20100729, end: 20110118
  7. XATRAL XL [Concomitant]
     Dosage: 10 MILLIGRAM
     Route: 048
     Dates: start: 20100224, end: 20110118
  8. MEGESTROL ACETATE [Concomitant]
     Route: 048
     Dates: start: 20101104, end: 20110118
  9. LENALIDOMIDE [Suspect]
     Dosage: 25 MILLIGRAM
     Route: 048
     Dates: start: 20101230, end: 20110118
  10. ATENOLOL [Concomitant]
     Indication: HYPERTENSION
     Dosage: 25 MILLIGRAM
     Route: 048
     Dates: start: 20100224, end: 20110118
  11. DEXAMETHASONE [Suspect]
     Dosage: 20 MILLIGRAM
     Route: 065
     Dates: start: 20101230, end: 20110118
  12. ALMAGEL [Concomitant]
     Indication: PROPHYLAXIS AGAINST GASTROINTESTINAL ULCER
     Dosage: 1500 MILLIGRAM
     Route: 048
     Dates: start: 20100527, end: 20110118
  13. PROSCAR [Concomitant]
     Dosage: 5 MILLIGRAM
     Route: 048
     Dates: start: 20100224, end: 20110118
  14. OXYCONTIN [Concomitant]
     Dosage: 80 MILLIGRAM
     Route: 048
     Dates: start: 20100530, end: 20110118

REACTIONS (1)
  - SUDDEN DEATH [None]
